FAERS Safety Report 8224501-3 (Version None)
Quarter: 2012Q1

REPORT INFORMATION
  Report Type: 
  Country: None (occurrence: None)
  Receive Date: 20120319
  Receipt Date: 20120304
  Transmission Date: 20120608
  Serious: Yes (Hospitalization)
  Sender: FDA-Public Use
  Company Number: UTC-016381

PATIENT
  Age: 48 Year
  Sex: Female

DRUGS (2)
  1. REMODULIN [Suspect]
     Indication: PULMONARY ARTERIAL HYPERTENSION
     Dosage: 32.4 UG/KG (0.0225 UG/KG, 1 IN 1 MIN), INTRAVENOUS (1 IN 1 MIN), INTRAVENOUS
     Route: 042
     Dates: start: 20120201
  2. REMODULIN [Suspect]
     Indication: PULMONARY ARTERIAL HYPERTENSION
     Dosage: 32.4 UG/KG (0.0225 UG/KG, 1 IN 1 MIN), INTRAVENOUS (1 IN 1 MIN), INTRAVENOUS
     Route: 042
     Dates: start: 20120123

REACTIONS (2)
  - HEADACHE [None]
  - MIGRAINE [None]
